FAERS Safety Report 15735745 (Version 2)
Quarter: 2019Q1

REPORT INFORMATION
  Report Type: Spontaneous
  Country: BE (occurrence: BE)
  Receive Date: 20181218
  Receipt Date: 20190212
  Transmission Date: 20190417
  Serious: Yes (Other)
  Sender: FDA-Public Use
  Company Number: BE-ELI_LILLY_AND_COMPANY-BE201812005080

PATIENT
  Age: 50 Year
  Sex: Male
  Weight: 78 kg

DRUGS (3)
  1. CHLORAZEPATE [Concomitant]
     Active Substance: CLORAZEPATE DIPOTASSIUM
     Indication: PRODUCT USED FOR UNKNOWN INDICATION
     Dosage: 4 X 5 MG
     Route: 048
  2. ZYPADHERA [Suspect]
     Active Substance: OLANZAPINE PAMOATE
     Indication: SCHIZOPHRENIA
     Dosage: 210 MG, EVERY 4 WEEKS
     Route: 065
  3. VALPROATE [Concomitant]
     Active Substance: VALPROIC ACID
     Indication: PRODUCT USED FOR UNKNOWN INDICATION
     Dosage: 500 MG, BID
     Route: 048

REACTIONS (13)
  - Dysarthria [Recovered/Resolved]
  - Confusional state [Recovered/Resolved]
  - Sedation [Recovered/Resolved]
  - Dizziness [Recovered/Resolved]
  - Agitation [Recovered/Resolved]
  - Coordination abnormal [Recovered/Resolved]
  - Fatigue [Recovered/Resolved]
  - Incorrect dose administered [Unknown]
  - Disorientation [Recovered/Resolved]
  - Somnolence [Recovered/Resolved]
  - Post-injection delirium sedation syndrome [Recovered/Resolved]
  - Psychotic disorder [Recovered/Resolved]
  - Psychomotor hyperactivity [Recovered/Resolved]
